FAERS Safety Report 20223809 (Version 3)
Quarter: 2022Q1

REPORT INFORMATION
  Report Type: Spontaneous
  Country: LT (occurrence: LT)
  Receive Date: 20211223
  Receipt Date: 20220104
  Transmission Date: 20220423
  Serious: Yes (Death, Life-Threatening, Other)
  Sender: FDA-Public Use
  Company Number: LT-SA-SAC20211222001423

PATIENT
  Age: 64 Year
  Weight: 77 kg

DRUGS (14)
  1. SARCLISA [Suspect]
     Active Substance: ISATUXIMAB-IRFC
     Dosage: UNK
     Dates: start: 20211206
  2. SARCLISA [Suspect]
     Active Substance: ISATUXIMAB-IRFC
     Dosage: UNK
     Dates: start: 20211213
  3. ONDANSETRON [Suspect]
     Active Substance: ONDANSETRON
     Dosage: UNK
  4. CYCLOPHOSPHAMIDE [Concomitant]
     Active Substance: CYCLOPHOSPHAMIDE
     Dosage: UNK
  5. DEXAMETHASONE [Concomitant]
     Active Substance: DEXAMETHASONE
     Dosage: UNK
  6. ISATUXIMAB [Concomitant]
     Active Substance: ISATUXIMAB
     Dosage: UNK
     Dates: start: 20211206
  7. FILGRASTIM [Concomitant]
     Active Substance: FILGRASTIM
     Dosage: UNK
  8. MORPHINE SULFATE [Concomitant]
     Active Substance: MORPHINE SULFATE
     Dosage: UNK
  9. BISEPTOL [Concomitant]
     Active Substance: SULFAMETHOXAZOLE\TRIMETHOPRIM
     Dosage: 960 MG
  10. POMALIDOMIDE [Concomitant]
     Active Substance: POMALIDOMIDE
     Dosage: UNK
  11. ACYCLOVIR [Concomitant]
     Active Substance: ACYCLOVIR
     Indication: Prophylaxis
     Dosage: 400 MG
  12. MORPHINE [Concomitant]
     Active Substance: MORPHINE
     Indication: Pain
     Dosage: UNK
  13. FENTANYL [Concomitant]
     Active Substance: FENTANYL
     Dosage: 75 MCG PATCH
  14. KCL [Concomitant]
     Active Substance: POTASSIUM CHLORIDE
     Dosage: 2 G

REACTIONS (10)
  - Plasma cell myeloma [Fatal]
  - Plasmacytoma [Fatal]
  - Condition aggravated [Fatal]
  - Resorption bone increased [Fatal]
  - Plasma cell myeloma [Fatal]
  - Disease progression [Fatal]
  - Light chain analysis increased [Fatal]
  - Agranulocytosis [Fatal]
  - Hepatic enzyme increased [Fatal]
  - Hypercalcaemia [Unknown]
